FAERS Safety Report 11925758 (Version 1)
Quarter: 2016Q1

REPORT INFORMATION
  Report Type: Spontaneous
  Country: US (occurrence: US)
  Receive Date: 20160118
  Receipt Date: 20160118
  Transmission Date: 20160526
  Serious: Yes (Other)
  Sender: FDA-Public Use
  Company Number: US-SA-2016SA007202

PATIENT
  Age: 53 Year
  Sex: Female

DRUGS (3)
  1. NORPRAMIN [Suspect]
     Active Substance: DESIPRAMINE HYDROCHLORIDE
     Indication: DEPRESSION
     Dosage: DOSE FREQUENCY: 50MG AT 8AM, 12 NOON, 4PM AND AT 8PM. SHE ALSO TAKES 100MG AT BEDTIME
     Route: 065
  2. ALPRAZOLAM. [Concomitant]
     Active Substance: ALPRAZOLAM
     Route: 065
  3. NORPRAMIN [Suspect]
     Active Substance: DESIPRAMINE HYDROCHLORIDE
     Indication: DEPRESSION
     Dosage: 50MG AT 8AM, 12 NOON, 4PM AND AT 8PM
     Route: 065
     Dates: start: 1997

REACTIONS (3)
  - Wrist surgery [Unknown]
  - Knee operation [Unknown]
  - Hysterectomy [Unknown]
